FAERS Safety Report 21877910 (Version 5)
Quarter: 2023Q2

REPORT INFORMATION
  Report Type: Report from Study
  Country: US (occurrence: US)
  Receive Date: 20230118
  Receipt Date: 20230510
  Transmission Date: 20230722
  Serious: Yes (Other)
  Sender: FDA-Public Use
  Company Number: US-002147023-NVSC2023US011126

PATIENT
  Sex: Male

DRUGS (1)
  1. LEQVIO [Suspect]
     Active Substance: INCLISIRAN SODIUM
     Indication: Blood cholesterol increased
     Dosage: UNK
     Route: 058

REACTIONS (4)
  - Thrombosis [Unknown]
  - Nerve compression [Unknown]
  - Pain in extremity [Unknown]
  - Intervertebral disc disorder [Unknown]
